FAERS Safety Report 17798504 (Version 1)
Quarter: 2020Q2

REPORT INFORMATION
  Report Type: Spontaneous
  Country: FR (occurrence: FR)
  Receive Date: 20200518
  Receipt Date: 20200518
  Transmission Date: 20200714
  Serious: Yes (Hospitalization)
  Sender: FDA-Public Use
  Company Number: FR-MYLANLABS-2020M1047719

PATIENT
  Age: 13 Year
  Sex: Male
  Weight: 41.2 kg

DRUGS (1)
  1. FENTANYL MYLAN [Suspect]
     Active Substance: FENTANYL
     Indication: PAIN
     Dosage: 45 MICROGRAM, QH
     Route: 042
     Dates: start: 20200310, end: 20200319

REACTIONS (3)
  - Hallucination, auditory [Recovered/Resolved]
  - Logorrhoea [Recovered/Resolved]
  - Hallucination, visual [Recovered/Resolved]

NARRATIVE: CASE EVENT DATE: 20200314
